FAERS Safety Report 13498898 (Version 1)
Quarter: 2017Q2

REPORT INFORMATION
  Report Type: Spontaneous
  Country: US (occurrence: US)
  Receive Date: 20170430
  Receipt Date: 20170430
  Transmission Date: 20170830
  Serious: No
  Sender: FDA-Public Use
  Company Number: None

PATIENT
  Age: 65 Year
  Sex: Female
  Weight: 54.45 kg

DRUGS (3)
  1. CENTRUM SILVER [Concomitant]
     Active Substance: MINERALS\VITAMINS
  2. VALACYCLOVIR HCL 1 GRAM TABLET [Suspect]
     Active Substance: VALACYCLOVIR HYDROCHLORIDE
     Indication: ORAL HERPES
     Route: 048
     Dates: start: 20170429, end: 20170429
  3. ACTONEL [Concomitant]
     Active Substance: RISEDRONATE SODIUM

REACTIONS (2)
  - Flushing [None]
  - Intentional product use issue [None]

NARRATIVE: CASE EVENT DATE: 20170429
